FAERS Safety Report 8484853 (Version 3)
Quarter: 2013Q1

REPORT INFORMATION
  Report Type: Spontaneous
  Country: US (occurrence: US)
  Receive Date: 20120330
  Receipt Date: 20130208
  Transmission Date: 20140127
  Serious: Yes (Other)
  Sender: FDA-Public Use
  Company Number: US-JNJFOC-20120310292

PATIENT
  Age: 27 Year
  Sex: Female
  Weight: 76.19 kg

DRUGS (2)
  1. RISPERIDONE [Suspect]
     Indication: SCHIZOPHRENIA
     Dosage: EACH EVENING
     Route: 065
     Dates: start: 20110815, end: 20111207
  2. ORAL CONTRACEPTIVE PILL [Concomitant]
     Indication: CONTRACEPTION
     Route: 048
     Dates: start: 20110914

REACTIONS (4)
  - Placental disorder [Unknown]
  - Abortion missed [Recovered/Resolved]
  - Exposure during pregnancy [Recovered/Resolved]
  - Smear cervix abnormal [Unknown]
